FAERS Safety Report 8302967-8 (Version None)
Quarter: 2012Q2

REPORT INFORMATION
  Report Type: 
  Country: None (occurrence: None)
  Receive Date: 20120420
  Receipt Date: 20120412
  Transmission Date: 20120825
  Serious: Yes (Other)
  Sender: FDA-Public Use
  Company Number: US-PFIZER INC-2012059594

PATIENT
  Sex: Female
  Weight: 82.086 kg

DRUGS (11)
  1. METOPROLOL TARTRATE [Suspect]
     Indication: BLOOD PRESSURE ABNORMAL
     Dosage: 50 MG, DAILY
  2. ZETIA [Suspect]
     Dosage: 10 MG, ALTERNATE DAY
     Dates: end: 20120201
  3. LEVOTHYROXINE [Concomitant]
     Indication: THYROID DISORDER
     Dosage: 100 UG, DAILY
  4. CALCIUM [Concomitant]
     Dosage: UNK
  5. METOPROLOL TARTRATE [Suspect]
     Indication: CARDIAC DISORDER
     Dosage: 25 MG, 2X/DAY
  6. VITAMIN D [Concomitant]
     Dosage: UNK
  7. LIPITOR [Suspect]
     Indication: CARDIAC DISORDER
     Dosage: 60MG AND 40MG DAILY ON ALTERNATE DAYS
     Dates: end: 20120201
  8. LIPITOR [Suspect]
     Indication: BLOOD CHOLESTEROL ABNORMAL
  9. METOPROLOL TARTRATE [Suspect]
     Dosage: UNK
  10. ZETIA [Suspect]
     Indication: BLOOD CHOLESTEROL ABNORMAL
     Dosage: 10 MG, DAILY
  11. ASPIRIN [Concomitant]
     Dosage: UNK

REACTIONS (11)
  - RENAL DISORDER [None]
  - WEIGHT DECREASED [None]
  - URINE ANALYSIS ABNORMAL [None]
  - OSTEOPOROSIS [None]
  - POLLAKIURIA [None]
  - BODY HEIGHT DECREASED [None]
  - JOINT SWELLING [None]
  - RESTLESSNESS [None]
  - PAIN IN EXTREMITY [None]
  - MUSCLE SPASMS [None]
  - HYPOAESTHESIA [None]
